FAERS Safety Report 16138203 (Version 1)
Quarter: 2019Q1

REPORT INFORMATION
  Report Type: Spontaneous
  Country: FR (occurrence: FR)
  Receive Date: 20190330
  Receipt Date: 20190330
  Transmission Date: 20190418
  Serious: Yes (Life-Threatening)
  Sender: FDA-Public Use
  Company Number: FR-ACCORD-117160

PATIENT
  Age: 68 Year
  Sex: Male

DRUGS (7)
  1. CEFAZOLIN [Concomitant]
     Active Substance: CEFAZOLIN
     Dates: start: 20180608
  2. SUFENTANIL [Concomitant]
     Active Substance: SUFENTANIL
     Dates: start: 20180608
  3. DEXAMETHASONE. [Concomitant]
     Active Substance: DEXAMETHASONE
     Dates: start: 20180608
  4. CISATRACURIUM/CISATRACURIUM BESILATE [Suspect]
     Active Substance: CISATRACURIUM BESYLATE
     Indication: ANAESTHESIA
     Route: 042
     Dates: start: 20180608
  5. KETOPROFEN. [Concomitant]
     Active Substance: KETOPROFEN
     Dates: start: 20180608
  6. PROPOFOL. [Concomitant]
     Active Substance: PROPOFOL
     Dates: start: 20180608
  7. RENITEC [Concomitant]
     Active Substance: ENALAPRIL MALEATE

REACTIONS (1)
  - Anaphylactic shock [Recovered/Resolved]

NARRATIVE: CASE EVENT DATE: 20180608
